FAERS Safety Report 4499008-X (Version None)
Quarter: 2004Q4

REPORT INFORMATION
  Report Type: 
  Country: None (occurrence: None)
  Receive Date: 20040927
  Receipt Date: 20040623
  Transmission Date: 20050328
  Serious: No
  Sender: FDA-Public Use
  Company Number: USA040670951

PATIENT
  Age: 10 Year
  Sex: Male
  Weight: 66 kg

DRUGS (1)
  1. STRATTERA [Suspect]
     Dosage: 80 MG/1 IN THE MORNING
     Dates: start: 20040618

REACTIONS (3)
  - FATIGUE [None]
  - FEELING COLD [None]
  - SOMNOLENCE [None]
